FAERS Safety Report 5976180-3 (Version None)
Quarter: 2008Q4

REPORT INFORMATION
  Report Type: 
  Country: None (occurrence: None)
  Receive Date: 20081202
  Receipt Date: 20081119
  Transmission Date: 20090506
  Serious: Yes (Hospitalization, Other)
  Sender: FDA-Public Use
  Company Number: JP-SANOFI-SYNTHELABO-A01200812146

PATIENT
  Sex: Male
  Weight: 55 kg

DRUGS (4)
  1. FLUOROURACIL [Suspect]
     Dosage: 600MG/BODY (400MG/M2) IN BOLUS THEN 3000MG/BODY/D1-2 (2000MG/M2/D1-2) AS CONTINUOUS INFUSION
     Route: 040
     Dates: start: 20080901, end: 20080901
  2. FLUOROURACIL [Suspect]
     Route: 041
     Dates: start: 20080901, end: 20080901
  3. LEUCOVORIN CALCIUM [Suspect]
     Route: 041
     Dates: start: 20080901, end: 20080901
  4. ELPLAT [Suspect]
     Indication: RECTAL CANCER
     Route: 041
     Dates: start: 20080901, end: 20080901

REACTIONS (2)
  - ALTERED STATE OF CONSCIOUSNESS [None]
  - SHOCK [None]
